FAERS Safety Report 6711694-X (Version None)
Quarter: 2010Q2

REPORT INFORMATION
  Report Type: 
  Country: None (occurrence: None)
  Receive Date: 20100505
  Receipt Date: 20100427
  Transmission Date: 20101027
  Serious: Yes (Hospitalization)
  Sender: FDA-Public Use
  Company Number: US-ASTRAZENECA-2010SE18783

PATIENT
  Age: 48 Year
  Sex: Female

DRUGS (2)
  1. SEROQUEL [Suspect]
     Indication: BIPOLAR DISORDER
     Route: 048
     Dates: start: 20100422
  2. SEROQUEL [Suspect]
     Route: 048
     Dates: start: 20100422

REACTIONS (3)
  - DYSPHONIA [None]
  - OEDEMA PERIPHERAL [None]
  - UPPER AIRWAY OBSTRUCTION [None]
